FAERS Safety Report 4550219-4 (Version None)
Quarter: 2004Q4

REPORT INFORMATION
  Report Type: 
  Country: None (occurrence: None)
  Receive Date: 20041227
  Receipt Date: 20041117
  Transmission Date: 20050328
  Serious: No
  Sender: FDA-Public Use
  Company Number: 04P-163-0280828-00

PATIENT
  Age: 70 Year
  Sex: Female
  Weight: 79.8331 kg

DRUGS (9)
  1. HUMIRA [Suspect]
     Indication: RHEUMATOID ARTHRITIS
     Dosage: 40 MG, 1 IN 2 WK, SUBCUTANEOUS
     Route: 058
     Dates: start: 20040301, end: 20040701
  2. SALMETEROL XINAFOATE [Concomitant]
  3. ALBUTEROL [Concomitant]
  4. DIAZIDE [Concomitant]
  5. VENLFAXINE HYDROCHLORIDE [Concomitant]
  6. VICODIN [Concomitant]
  7. ESOMEPRAZOLE [Concomitant]
  8. VOSPIRE ER [Concomitant]
  9. METFORMIN HCL [Concomitant]

REACTIONS (1)
  - CYSTITIS [None]
